FAERS Safety Report 9169142 (Version 2)
Quarter: 2013Q2

REPORT INFORMATION
  Report Type: Spontaneous
  Country: DE (occurrence: DE)
  Receive Date: 20130318
  Receipt Date: 20130415
  Transmission Date: 20140414
  Serious: Yes (Death, Hospitalization)
  Sender: FDA-Public Use
  Company Number: DE-GLAXOSMITHKLINE-D0079133A

PATIENT
  Age: 77 Year
  Sex: Male
  Weight: 80 kg

DRUGS (3)
  1. ARIXTRA [Suspect]
     Indication: ATRIAL FIBRILLATION
     Dosage: 7.5MG PER DAY
     Route: 058
     Dates: start: 20130226, end: 20130309
  2. CEFTRIAXON [Concomitant]
     Route: 042
  3. GENTAMYCIN [Concomitant]
     Route: 042

REACTIONS (3)
  - Cerebral haemorrhage [Fatal]
  - Headache [Fatal]
  - Brain compression [Fatal]
